FAERS Safety Report 7001861-2 (Version None)
Quarter: 2010Q3

REPORT INFORMATION
  Report Type: 
  Country: None (occurrence: None)
  Receive Date: 20100916
  Receipt Date: 20100827
  Transmission Date: 20110219
  Serious: Yes (Other)
  Sender: FDA-Public Use
  Company Number: 017954

PATIENT
  Sex: Female
  Weight: 83.9 kg

DRUGS (9)
  1. CIMZIA [Suspect]
     Indication: CROHN'S DISEASE
     Dosage: (400 MG 1X/MONTH SUBCUTANEOUS)
     Route: 058
     Dates: start: 20091201, end: 20100730
  2. ENTOCORT EC [Concomitant]
  3. BENTYL [Concomitant]
  4. PREMPRO [Concomitant]
  5. INFED [Concomitant]
  6. VITAMIN B12 /00056201/ [Concomitant]
  7. PREMARIN [Concomitant]
  8. VITAMIN D [Concomitant]
  9. MULTI-VITAMINS [Concomitant]

REACTIONS (8)
  - BREAST CANCER [None]
  - BREAST MASS [None]
  - CALCINOSIS [None]
  - FATIGUE [None]
  - HAEMATOMA [None]
  - INCISION SITE HAEMORRHAGE [None]
  - STRESS [None]
  - WEIGHT DECREASED [None]
